FAERS Safety Report 14630297 (Version 2)
Quarter: 2018Q4

REPORT INFORMATION
  Report Type: Spontaneous
  Country: IT (occurrence: IT)
  Receive Date: 20180313
  Receipt Date: 20181127
  Transmission Date: 20190204
  Serious: Yes (Hospitalization)
  Sender: FDA-Public Use
  Company Number: PHHY2018IT039005

PATIENT
  Age: 57 Year
  Sex: Male

DRUGS (7)
  1. LATTULAC [Concomitant]
     Indication: PRODUCT USED FOR UNKNOWN INDICATION
     Dosage: UNK (SCIROPPO - FLACONE DA 200 ML)
     Route: 065
  2. NOXAFIL [Concomitant]
     Active Substance: POSACONAZOLE
     Indication: PRODUCT USED FOR UNKNOWN INDICATION
     Dosage: UNK
     Route: 065
  3. SANDIMMUN NEORAL [Suspect]
     Active Substance: CYCLOSPORINE
     Indication: BONE MARROW TRANSPLANT
     Dosage: 100 MG, QD
     Route: 048
     Dates: start: 20170101, end: 20170518
  4. CALCIODIE [Concomitant]
     Indication: PRODUCT USED FOR UNKNOWN INDICATION
     Route: 065
  5. LANSOX [Concomitant]
     Active Substance: LANSOPRAZOLE
     Indication: PRODUCT USED FOR UNKNOWN INDICATION
     Route: 065
  6. MOVICOL [Concomitant]
     Active Substance: POLYETHYLENE GLYCOL 3350\POTASSIUM CHLORIDE\SODIUM BICARBONATE\SODIUM CHLORIDE
     Indication: PRODUCT USED FOR UNKNOWN INDICATION
     Route: 065
  7. ZARZIO [Concomitant]
     Active Substance: FILGRASTIM
     Indication: PRODUCT USED FOR UNKNOWN INDICATION
     Dosage: UNK (30 MU/0.5 ML SOLUTION FOR INJECTION OR INFUSION IN PRE-FILLED S)
     Route: 065

REACTIONS (2)
  - Pneumonitis [Unknown]
  - Haematuria [Unknown]

NARRATIVE: CASE EVENT DATE: 20170518
